FAERS Safety Report 10099581 (Version 1)
Quarter: 2014Q2

REPORT INFORMATION
  Report Type: Spontaneous
  Country: CN (occurrence: CN)
  Receive Date: 20140423
  Receipt Date: 20140423
  Transmission Date: 20141212
  Serious: Yes (Hospitalization)
  Sender: FDA-Public Use
  Company Number: CN-BAYER-2014-058072

PATIENT
  Age: 57 Year
  Sex: Female
  Weight: 48.5 kg

DRUGS (1)
  1. IOPROMIDE [Suspect]
     Indication: IMAGING PROCEDURE
     Dosage: 75 ML, ONCE
     Route: 042
     Dates: start: 20130625, end: 20130625

REACTIONS (5)
  - Language disorder [Recovering/Resolving]
  - Muscular weakness [Recovering/Resolving]
  - Dizziness [Recovering/Resolving]
  - Nausea [Recovering/Resolving]
  - Hyperhidrosis [Recovering/Resolving]
